FAERS Safety Report 19429601 (Version 2)
Quarter: 2021Q2

REPORT INFORMATION
  Report Type: Spontaneous
  Country: GB (occurrence: GB)
  Receive Date: 20210617
  Receipt Date: 20210628
  Transmission Date: 20210717
  Serious: Yes (Death, Other)
  Sender: FDA-Public Use
  Company Number: GB-MYLANLABS-2021M1028352

PATIENT
  Age: 52 Year
  Sex: Female

DRUGS (1)
  1. CLOZARIL [Suspect]
     Active Substance: CLOZAPINE
     Indication: SCHIZOPHRENIA
     Dosage: UNK
     Route: 048
     Dates: start: 20040125

REACTIONS (4)
  - Ovarian cancer [Fatal]
  - Leukocytosis [Not Recovered/Not Resolved]
  - Neutrophilia [Not Recovered/Not Resolved]
  - Platelet count increased [Unknown]

NARRATIVE: CASE EVENT DATE: 20210510
